FAERS Safety Report 7364928-5 (Version None)
Quarter: 2011Q1

REPORT INFORMATION
  Report Type: 
  Country: None (occurrence: None)
  Receive Date: 20110316
  Receipt Date: 20110316
  Transmission Date: 20110831
  Serious: Yes (Life-Threatening, Hospitalization, Other)
  Sender: FDA-Public Use
  Company Number: None

PATIENT

DRUGS (1)
  1. LISINOPRIL [Suspect]
     Indication: HYPERTENSION
     Dosage: 40 MG 1 X DAY
     Dates: start: 20110107, end: 20110111

REACTIONS (3)
  - HEART RATE IRREGULAR [None]
  - DIZZINESS [None]
  - HEART RATE DECREASED [None]
